FAERS Safety Report 16204763 (Version 1)
Quarter: 2019Q2

REPORT INFORMATION
  Report Type: Spontaneous
  Country: US (occurrence: US)
  Receive Date: 20190416
  Receipt Date: 20190416
  Transmission Date: 20190711
  Serious: Yes (Other)
  Sender: FDA-Public Use
  Company Number: US-ASTRAZENECA-2019SE57528

PATIENT
  Sex: Male

DRUGS (3)
  1. PREVACID [Suspect]
     Active Substance: LANSOPRAZOLE
     Route: 065
  2. NEXIUM [Suspect]
     Active Substance: ESOMEPRAZOLE MAGNESIUM
     Route: 048
     Dates: start: 2016
  3. OMEPRAZOLE. [Suspect]
     Active Substance: OMEPRAZOLE
     Route: 048
     Dates: start: 2016, end: 2017

REACTIONS (2)
  - Chronic kidney disease [Unknown]
  - Renal failure [Unknown]
